FAERS Safety Report 25593194 (Version 1)
Quarter: 2025Q3

REPORT INFORMATION
  Report Type: Spontaneous
  Country: US (occurrence: US)
  Receive Date: 20250722
  Receipt Date: 20250722
  Transmission Date: 20251021
  Serious: Yes (Other)
  Sender: ALEXION PHARMACEUTICALS
  Company Number: US-ASTRAZENECA-202507GLO012288US

PATIENT
  Age: 64 Year
  Sex: Male

DRUGS (14)
  1. NEXIUM [Suspect]
     Active Substance: ESOMEPRAZOLE MAGNESIUM
     Route: 065
  2. METFORMIN [Concomitant]
     Active Substance: METFORMIN HYDROCHLORIDE
     Route: 065
  3. PENICILLIN [Concomitant]
     Active Substance: PENICILLIN
  4. ASPIRIN [Concomitant]
     Active Substance: ASPIRIN
     Route: 065
  5. CHOLECALCIFEROL [Concomitant]
     Active Substance: CHOLECALCIFEROL
  6. LOSARTAN [Concomitant]
     Active Substance: LOSARTAN
     Route: 065
  7. MYCOPHENOLIC ACID [Concomitant]
     Active Substance: MYCOPHENOLIC ACID
     Route: 065
  8. POTASSIUM GLUCONATE [Concomitant]
     Active Substance: POTASSIUM GLUCONATE
     Route: 065
  9. PREDNISONE [Concomitant]
     Active Substance: PREDNISONE
     Route: 065
  10. SIMVASTATIN [Concomitant]
     Active Substance: SIMVASTATIN
     Route: 065
  11. TACROLIMUS [Concomitant]
     Active Substance: TACROLIMUS
     Route: 065
  12. PANTOPRAZOLE [Concomitant]
     Active Substance: PANTOPRAZOLE
     Route: 065
  13. HEPARIN [Concomitant]
     Active Substance: HEPARIN SODIUM
  14. ATORVASTATIN [Concomitant]
     Active Substance: ATORVASTATIN
     Route: 065

REACTIONS (1)
  - Adenocarcinoma gastric [Unknown]
